FAERS Safety Report 4308544-8 (Version None)
Quarter: 2004Q1

REPORT INFORMATION
  Report Type: 
  Country: None (occurrence: None)
  Receive Date: 20040225
  Receipt Date: 20030131
  Transmission Date: 20041129
  Serious: Yes (Life-Threatening, Hospitalization, Other)
  Sender: FDA-Public Use
  Company Number: WAES 0211USA02449

PATIENT
  Age: 73 Year
  Sex: Male
  Weight: 87.0906 kg

DRUGS (10)
  1. ZOCOR [Suspect]
     Indication: HYPERCHOLESTEROLAEMIA
     Dosage: PO; SEE IMAGE
     Route: 048
     Dates: start: 19981214, end: 20020803
  2. ZOCOR [Suspect]
     Indication: HYPERCHOLESTEROLAEMIA
     Dosage: PO; SEE IMAGE
     Route: 048
     Dates: start: 20020804, end: 20021121
  3. CENTRUM [Concomitant]
  4. COUMADIN [Concomitant]
  5. PRINIVIL [Concomitant]
  6. REMINYL [Concomitant]
  7. CYANOCOBALAMIN [Concomitant]
  8. FOLIC ACID [Concomitant]
  9. PYRIDOXINE [Concomitant]
  10. VERAPAMIL [Concomitant]

REACTIONS (1)
  - RHABDOMYOLYSIS [None]
